FAERS Safety Report 9069279 (Version 4)
Quarter: 2013Q2

REPORT INFORMATION
  Report Type: Report from Study
  Country: CA (occurrence: CA)
  Receive Date: 20130215
  Receipt Date: 20130516
  Transmission Date: 20140414
  Serious: Yes (Death)
  Sender: FDA-Public Use
  Company Number: CA-JNJFOC-20130205464

PATIENT
  Age: 56 Year
  Sex: Male
  Weight: 123 kg

DRUGS (6)
  1. STELARA [Suspect]
     Indication: PSORIASIS
     Dates: start: 20110912, end: 20121211
  2. INDOCID [Concomitant]
     Route: 048
  3. METFORMIN [Concomitant]
     Route: 048
  4. NORVASC [Concomitant]
     Route: 048
  5. ALTACE [Concomitant]
     Route: 048
  6. DOVOBET [Concomitant]
     Route: 048

REACTIONS (1)
  - Metastases to bone [Fatal]
